FAERS Safety Report 5575342-7 (Version None)
Quarter: 2007Q4

REPORT INFORMATION
  Report Type: 
  Country: None (occurrence: None)
  Receive Date: 20071130
  Receipt Date: 20070803
  Transmission Date: 20080405
  Serious: No
  Sender: FDA-Public Use
  Company Number: US200708001461

PATIENT
  Sex: Male

DRUGS (2)
  1. BYETTA [Suspect]
     Dosage: UG, SUBCUTANEOUS
     Route: 058
  2. EXENATIDE (EXENATIDE PEN) [Concomitant]

REACTIONS (3)
  - FALL [None]
  - MALAISE [None]
  - PAIN IN EXTREMITY [None]
